FAERS Safety Report 17239257 (Version 1)
Quarter: 2020Q1

REPORT INFORMATION
  Report Type: Spontaneous
  Country: US (occurrence: US)
  Receive Date: 20200106
  Receipt Date: 20200106
  Transmission Date: 20200409
  Serious: No
  Sender: FDA-Public Use
  Company Number: US-ABBVIE-19K-163-2769644-00

PATIENT
  Sex: Female

DRUGS (2)
  1. VENCLEXTA [Suspect]
     Active Substance: VENETOCLAX
     Indication: LYMPHADENOPATHY
     Dosage: TAKE 3 TABLET(S) BY MOUTH EVERY DAY WITH BREAKFAST
     Route: 048
  2. VENCLEXTA [Suspect]
     Active Substance: VENETOCLAX
     Indication: MANTLE CELL LYMPHOMA
     Dosage: TAKE 4 TABLET(S) BY MOUTH EVERY DAY WITH BREAKFAST
     Route: 048

REACTIONS (2)
  - Gastrooesophageal reflux disease [Unknown]
  - Intentional product use issue [Unknown]
